FAERS Safety Report 6504126-8 (Version None)
Quarter: 2009Q4

REPORT INFORMATION
  Report Type: 
  Country: None (occurrence: None)
  Receive Date: 20091215
  Receipt Date: 20091207
  Transmission Date: 20100525
  Serious: Yes (Other)
  Sender: FDA-Public Use
  Company Number: OSCN-NO-0912S-0524

PATIENT
  Age: 46 Year
  Sex: Male

DRUGS (3)
  1. OMNISCAN [Suspect]
     Indication: DRUG USE FOR UNKNOWN INDICATION
     Dosage: SINGLE DOSE, I.V.
     Route: 042
     Dates: start: 20040330, end: 20040330
  2. GADOTERATE (DOTAREM) [Suspect]
     Indication: DRUG USE FOR UNKNOWN INDICATION
     Dosage: SINGLE DOSE, I.V.
     Route: 042
     Dates: start: 20000101, end: 20000101
  3. GADOTERATE (DOTAREM) [Suspect]
     Indication: DRUG USE FOR UNKNOWN INDICATION
     Dosage: SINGLE DOSE, I.V.
     Route: 042
     Dates: start: 20031001, end: 20031001

REACTIONS (3)
  - LEG AMPUTATION [None]
  - NEPHROGENIC SYSTEMIC FIBROSIS [None]
  - POOR PERIPHERAL CIRCULATION [None]
